FAERS Safety Report 10048337 (Version 5)
Quarter: 2015Q2

REPORT INFORMATION
  Report Type: Spontaneous
  Country: US (occurrence: US)
  Receive Date: 20140331
  Receipt Date: 20150429
  Transmission Date: 20150821
  Serious: Yes (Hospitalization, Disabling, Other)
  Sender: FDA-Public Use
  Company Number: US-GLAXOSMITHKLINE-A1067266A

PATIENT

DRUGS (19)
  1. BENADRYL [Concomitant]
     Active Substance: DIPHENHYDRAMINE HYDROCHLORIDE
  2. NITROSTAT [Concomitant]
     Active Substance: NITROGLYCERIN
  3. PLAVIX [Concomitant]
     Active Substance: CLOPIDOGREL BISULFATE
  4. TOPIRAMATE. [Concomitant]
     Active Substance: TOPIRAMATE
  5. EPIPEN [Concomitant]
     Active Substance: EPINEPHRINE
  6. ISOSORBIDE [Concomitant]
     Active Substance: ISOSORBIDE
  7. NIACIN. [Concomitant]
     Active Substance: NIACIN
  8. VENTOLIN [Suspect]
     Active Substance: ALBUTEROL SULFATE
     Indication: DYSPNOEA
  9. PAROXETINE [Concomitant]
     Active Substance: PAROXETINE\PAROXETINE HYDROCHLORIDE
  10. ASPIRIN. [Concomitant]
     Active Substance: ASPIRIN
  11. LORAZEPAM. [Concomitant]
     Active Substance: LORAZEPAM
  12. WARFARIN [Concomitant]
     Active Substance: WARFARIN
  13. SIMVASTATIN. [Concomitant]
     Active Substance: SIMVASTATIN
  14. TOPROL XL [Concomitant]
     Active Substance: METOPROLOL SUCCINATE
  15. TYLENOL [Concomitant]
     Active Substance: ACETAMINOPHEN
  16. VENTOLIN [Suspect]
     Active Substance: ALBUTEROL SULFATE
     Indication: CHRONIC OBSTRUCTIVE PULMONARY DISEASE
     Dosage: 2 PUFFS EVERY 4 HOURS AS NEEDED
     Route: 055
     Dates: start: 2008
  17. FAMOTIDINE. [Concomitant]
     Active Substance: FAMOTIDINE
  18. LISINOPRIL. [Concomitant]
     Active Substance: LISINOPRIL
  19. TRAMADOL [Concomitant]
     Active Substance: TRAMADOL

REACTIONS (13)
  - Learning disorder [Unknown]
  - Acute myocardial infarction [Unknown]
  - Cerebrovascular accident [Unknown]
  - Disability [Unknown]
  - Hypoxia [Unknown]
  - Aphasia [Unknown]
  - Oxygen saturation decreased [Unknown]
  - Impaired work ability [Unknown]
  - Oedema peripheral [Unknown]
  - Abdominal distension [Unknown]
  - Speech disorder [Unknown]
  - Cardiac disorder [Unknown]
  - Thinking abnormal [Unknown]

NARRATIVE: CASE EVENT DATE: 20130819
